FAERS Safety Report 4751033-7 (Version None)
Quarter: 2005Q3

REPORT INFORMATION
  Report Type: 
  Country: None (occurrence: None)
  Receive Date: 20050822
  Receipt Date: 20050809
  Transmission Date: 20060218
  Serious: Yes (Hospitalization)
  Sender: FDA-Public Use
  Company Number: 200508IM000394

PATIENT
  Age: 59 Year
  Sex: Female
  Weight: 80.196 kg

DRUGS (5)
  1. BLINDED THERAPY (INTERFERON GAMMA-1B) [Suspect]
     Indication: IDIOPATHIC PULMONARY FIBROSIS
     Dosage: 200 UG, TIW, SUBCUTANEOUS
     Route: 058
     Dates: start: 20050405
  2. IBUPROFEN [Concomitant]
  3. XANAX [Concomitant]
  4. AMBIEN [Concomitant]
  5. ZANTAC [Concomitant]

REACTIONS (2)
  - CHEST PAIN [None]
  - GASTROENTERITIS HELICOBACTER [None]
